FAERS Safety Report 7271142-0 (Version None)
Quarter: 2011Q1

REPORT INFORMATION
  Report Type: 
  Country: None (occurrence: None)
  Receive Date: 20110202
  Receipt Date: 20110131
  Transmission Date: 20110831
  Serious: Yes (Hospitalization, Other)
  Sender: FDA-Public Use
  Company Number: US-RB-021310-11

PATIENT
  Age: 78 Year
  Sex: Male

DRUGS (1)
  1. SUBOXONE [Suspect]
     Indication: PRODUCT USED FOR UNKNOWN INDICATION
     Dosage: DOSING INFORMATION UNKNOWN
     Route: 065

REACTIONS (5)
  - INTENTIONAL DRUG MISUSE [None]
  - HALLUCINATION [None]
  - HOSPITALISATION [None]
  - LOGORRHOEA [None]
  - DECREASED APPETITE [None]
